FAERS Safety Report 16160194 (Version 1)
Quarter: 2019Q2

REPORT INFORMATION
  Report Type: Spontaneous
  Country: US (occurrence: US)
  Receive Date: 20190404
  Receipt Date: 20190404
  Transmission Date: 20190711
  Serious: No
  Sender: FDA-Public Use
  Company Number: US-ACTELION-A-NJ2019-186400

PATIENT
  Sex: Female

DRUGS (1)
  1. UPTRAVI [Suspect]
     Active Substance: SELEXIPAG
     Indication: PULMONARY ARTERIAL HYPERTENSION
     Dosage: 200 MCG, QAM
     Route: 048
     Dates: start: 20190130, end: 20190205

REACTIONS (3)
  - Blood glucose fluctuation [Unknown]
  - Fluid retention [Unknown]
  - Fatigue [Unknown]
